FAERS Safety Report 10377861 (Version 1)
Quarter: 2014Q3

REPORT INFORMATION
  Report Type: Report from Study
  Country: US (occurrence: US)
  Receive Date: 20140812
  Receipt Date: 20140812
  Transmission Date: 20150326
  Serious: Yes (Life-Threatening, Hospitalization, Disabling, Other)
  Sender: FDA-Public Use
  Company Number: PHEH2014US015924

PATIENT
  Age: 84 Year
  Sex: Male

DRUGS (1)
  1. EXJADE [Suspect]
     Active Substance: DEFERASIROX
     Indication: SERUM FERRITIN INCREASED
     Dosage: 500 MG, TID
     Route: 048

REACTIONS (3)
  - Aortic rupture [Recovered/Resolved with Sequelae]
  - Procedural complication [Unknown]
  - Renal failure [Unknown]

NARRATIVE: CASE EVENT DATE: 20140429
